FAERS Safety Report 6699215-1 (Version None)
Quarter: 2010Q2

REPORT INFORMATION
  Report Type: 
  Country: None (occurrence: None)
  Receive Date: 20100427
  Receipt Date: 20100422
  Transmission Date: 20101027
  Serious: Yes (Disabling)
  Sender: FDA-Public Use
  Company Number: CH-ROCHE-583862

PATIENT
  Sex: Female
  Weight: 75 kg

DRUGS (1)
  1. BEVACIZUMAB [Suspect]
     Dosage: REPORTED FORM IS INJECTION, STRENGTH: 25 MG/ML
     Route: 042
     Dates: start: 20080226

REACTIONS (1)
  - OESOPHAGEAL STENOSIS [None]
